FAERS Safety Report 17003361 (Version 1)
Quarter: 2019Q4

REPORT INFORMATION
  Report Type: Spontaneous
  Country: FR (occurrence: FR)
  Receive Date: 20191107
  Receipt Date: 20191107
  Transmission Date: 20200122
  Serious: Yes (Death, Other)
  Sender: FDA-Public Use
  Company Number: FR-TEVA-2019-FR-1131699

PATIENT
  Age: 0 Day
  Sex: Male
  Weight: .45 kg

DRUGS (8)
  1. MABTHERA [Suspect]
     Active Substance: RITUXIMAB
     Indication: THROMBOTIC THROMBOCYTOPENIC PURPURA
     Dosage: 2 DF, TOTAL
     Route: 064
     Dates: start: 20161207, end: 20161207
  2. SPECIAFOLDINE 5 MG, COMPRIME [Suspect]
     Active Substance: FOLIC ACID
     Indication: VITAMIN SUPPLEMENTATION
     Dosage: 1 DF, ONCE DAILY (QD)
     Route: 064
     Dates: start: 20161121
  3. ORACILLINE 1 000 000 U.I./10 ML, SUSPENSION BUVABLE (PHENOXYMETHYLPENICILLIN) [Suspect]
     Active Substance: PENICILLIN V
     Indication: ANTIBIOTIC PROPHYLAXIS
     Dosage: 2 DF, ONCE DAILY (QD)
     Route: 064
     Dates: start: 20161220
  4. PANTOPRAZOLE [Suspect]
     Active Substance: PANTOPRAZOLE
     Indication: PROPHYLAXIS AGAINST GASTROINTESTINAL ULCER
     Dosage: 20 MG, ONCE DAILY (QD)
     Route: 064
     Dates: start: 20161121
  5. CORTANCYL [Suspect]
     Active Substance: PREDNISONE
     Indication: THROMBOTIC THROMBOCYTOPENIC PURPURA
     Dosage: 80 MG, ONCE DAILY (QD)
     Route: 064
     Dates: start: 20161118
  6. KARDEGIC [Suspect]
     Active Substance: ASPIRIN DL-LYSINE
     Indication: PROPHYLAXIS
     Dosage: 1 DF, ONCE DAILY (QD)
     Route: 064
     Dates: start: 20161126
  7. CORTANCYL [Suspect]
     Active Substance: PREDNISONE
     Dosage: 20MG/DAY
     Route: 064
  8. CORTANCYL [Suspect]
     Active Substance: PREDNISONE
     Dosage: 80MG/DAY
     Route: 064
     Dates: start: 201701

REACTIONS (5)
  - Multiple organ dysfunction syndrome [Fatal]
  - Maternal exposure during pregnancy [Unknown]
  - Foetal growth restriction [Fatal]
  - Low birth weight baby [Unknown]
  - Premature baby [Fatal]

NARRATIVE: CASE EVENT DATE: 20161220
